FAERS Safety Report 4756691-9 (Version None)
Quarter: 2005Q3

REPORT INFORMATION
  Report Type: 
  Country: None (occurrence: None)
  Receive Date: 20050830
  Receipt Date: 20050727
  Transmission Date: 20060218
  Serious: Yes (Other)
  Sender: FDA-Public Use
  Company Number: PHBS2005AT10925

PATIENT
  Age: 74 Year
  Sex: Male

DRUGS (4)
  1. ZOMETA [Suspect]
     Indication: MULTIPLE MYELOMA
     Dosage: 4 MG EVERY 4 TO 6 WEEKS
     Route: 042
     Dates: start: 20021201, end: 20050601
  2. FORTECORTIN [Concomitant]
     Dosage: 40 MG, QMO
     Route: 065
     Dates: start: 20031001, end: 20040301
  3. ALKERAN [Concomitant]
     Dosage: 25 MG EVERY 6 WEEKS
     Route: 065
     Dates: start: 20040401, end: 20050701
  4. DURAGESIC-100 [Concomitant]
     Dosage: 50 UG/D
     Route: 065

REACTIONS (6)
  - ASEPTIC NECROSIS BONE [None]
  - BONE DISORDER [None]
  - BONE PAIN [None]
  - BREATH ODOUR [None]
  - FISTULA [None]
  - GENERAL NUTRITION DISORDER [None]
